FAERS Safety Report 7716163-6 (Version None)
Quarter: 2011Q3

REPORT INFORMATION
  Report Type: 
  Country: None (occurrence: None)
  Receive Date: 20110829
  Receipt Date: 20110817
  Transmission Date: 20111222
  Serious: Yes (Other)
  Sender: FDA-Public Use
  Company Number: CA-ELI_LILLY_AND_COMPANY-CA201108005297

PATIENT
  Sex: Female

DRUGS (18)
  1. PAXIL [Concomitant]
  2. LUVOX [Concomitant]
  3. ZOPICLONE [Concomitant]
  4. LOXAPINE HCL [Concomitant]
  5. QUETIAPINE [Concomitant]
  6. ZYPREXA [Suspect]
     Dosage: 2.5 MG, EACH EVENING
  7. PROZAC [Concomitant]
  8. ZYPREXA [Suspect]
     Indication: MAJOR DEPRESSION
     Dosage: 5 MG, EACH EVENING
     Dates: start: 19990505
  9. RISPERIDONE [Concomitant]
  10. NORTRIPTYLINE HCL [Concomitant]
  11. ZYPREXA [Suspect]
     Dosage: 7.5 MG, EACH EVENING
  12. WELLBUTRIN [Concomitant]
  13. ZYPREXA ZYDIS [Suspect]
     Indication: MAJOR DEPRESSION
     Dosage: 12.5 MG, EACH EVENING
  14. ASPIRIN [Concomitant]
  15. ZYPREXA [Suspect]
     Dosage: 10 MG, EACH EVENING
  16. ZYPREXA [Suspect]
     Dosage: 15 MG, EACH EVENING
  17. LORAZEPAM [Concomitant]
  18. CLONAZEPAM [Concomitant]

REACTIONS (7)
  - TYPE 2 DIABETES MELLITUS [None]
  - HEPATITIS C [None]
  - HYPERCHOLESTEROLAEMIA [None]
  - HYPERTENSION [None]
  - OFF LABEL USE [None]
  - ARRHYTHMIA SUPRAVENTRICULAR [None]
  - TUBERCULOSIS [None]
